FAERS Safety Report 15405017 (Version 1)
Quarter: 2018Q3

REPORT INFORMATION
  Report Type: Spontaneous
  Country: BE (occurrence: BE)
  Receive Date: 20180920
  Receipt Date: 20180920
  Transmission Date: 20181010
  Serious: Yes (Hospitalization)
  Sender: FDA-Public Use
  Company Number: BE-SUN PHARMACEUTICAL INDUSTRIES LTD-2018RR-184731

PATIENT
  Age: 87 Year
  Sex: Female
  Weight: 46 kg

DRUGS (11)
  1. MEDROL 2 MG [Concomitant]
     Indication: PSORIATIC ARTHROPATHY
     Dosage: 2 MG, QD
     Route: 048
  2. IRBESARTAN TEVA [Concomitant]
     Active Substance: IRBESARTAN
     Indication: HYPERTENSION
     Dosage: 300 MG, QD
     Route: 048
  3. OMEPRAZOLE. [Suspect]
     Active Substance: OMEPRAZOLE
     Indication: PROPHYLAXIS AGAINST GASTROINTESTINAL ULCER
     Route: 048
  4. DAFALGAN FORTE 1 G [Concomitant]
     Indication: PRODUCT USED FOR UNKNOWN INDICATION
     Dosage: 1 G, QD
     Route: 048
  5. D?CURE [Concomitant]
     Active Substance: CHOLECALCIFEROL
     Indication: VITAMIN D DEFICIENCY
     Dosage: 1 IU, MONTHLY
     Route: 048
  6. STEOVIT FORTE [Concomitant]
     Indication: OSTEOPOROSIS PROPHYLAXIS
     Dosage: 1000 MG CALCIUM 880 IE VITAMINE D
     Route: 048
  7. BISOPROLOL EG 5 MG [Concomitant]
     Indication: HYPERTENSION
     Dosage: 5 MG, QD
     Route: 048
  8. FOLIC ACID. [Concomitant]
     Active Substance: FOLIC ACID
     Indication: PROPHYLAXIS
     Dosage: 2 MG, QD
     Route: 048
  9. HALDOL ORAL DROPS, SOLUTION [Concomitant]
     Indication: DELIRIUM
     Dosage: ZO NODIG, BIJ VERWARDHEID
     Route: 048
  10. LEDERTREXATE [Interacting]
     Active Substance: METHOTREXATE
     Dosage: VOORZIENE POSOLOGIE: 5 MG PER WEEK.DE PATI?NTE HEEFT GEDURENDE ONGEVEER 1 MAAND 5 MG PER DAG ING...
     Route: 048
  11. ENBREL [Concomitant]
     Active Substance: ETANERCEPT
     Indication: PRODUCT USED FOR UNKNOWN INDICATION
     Dosage: 50 MG, WEEKLY
     Route: 058

REACTIONS (8)
  - Incorrect dose administered [Recovering/Resolving]
  - Overdose [Recovering/Resolving]
  - Pyrexia [Recovering/Resolving]
  - Pancytopenia [Recovering/Resolving]
  - Mucosal inflammation [Recovering/Resolving]
  - Drug interaction [Recovering/Resolving]
  - Stomatitis [Recovering/Resolving]
  - Decreased appetite [Recovering/Resolving]

NARRATIVE: CASE EVENT DATE: 20180627
